FAERS Safety Report 9145877 (Version 1)
Quarter: 2013Q1

REPORT INFORMATION
  Report Type: Spontaneous
  Country: US (occurrence: None)
  Receive Date: 20130227
  Receipt Date: 20130227
  Transmission Date: 20140127
  Serious: Yes (Other)
  Sender: FDA-Public Use
  Company Number: None

PATIENT
  Age: 64 Year
  Sex: Male
  Weight: 155.5 kg

DRUGS (1)
  1. CEFAZOLIN [Suspect]
     Indication: SURGERY
     Route: 042
     Dates: start: 20121210, end: 20121210

REACTIONS (2)
  - Anaphylactic reaction [None]
  - Drug hypersensitivity [None]
